FAERS Safety Report 4452608-5 (Version None)
Quarter: 2004Q3

REPORT INFORMATION
  Report Type: 
  Country: None (occurrence: None)
  Receive Date: 20040916
  Receipt Date: 20040904
  Transmission Date: 20050211
  Serious: Yes (Life-Threatening)
  Sender: FDA-Public Use
  Company Number: 2004063421

PATIENT
  Age: 73 Year
  Sex: Female

DRUGS (1)
  1. SULPERAZON (CEFOPERAZONE, SULBACTAM) [Suspect]
     Indication: ILL-DEFINED DISORDER
     Dosage: 2 GRAM (UNKNOWN) INTRAV-
     Dates: start: 20040903, end: 20040901

REACTIONS (1)
  - INTUBATION [None]
